FAERS Safety Report 10482627 (Version 1)
Quarter: 2014Q3

REPORT INFORMATION
  Report Type: Spontaneous
  Country: GR (occurrence: GR)
  Receive Date: 20140929
  Receipt Date: 20140929
  Transmission Date: 20150326
  Serious: Yes (Other)
  Sender: FDA-Public Use
  Company Number: PHHY2014GR124173

PATIENT
  Sex: Female

DRUGS (2)
  1. STALEVO [Suspect]
     Active Substance: CARBIDOPA\ENTACAPONE\LEVODOPA
     Dosage: UNK /150 MG/ UNK (ENTACAPONE/ LEVODOPA/ CARBIDOPA)
  2. STALEVO [Suspect]
     Active Substance: CARBIDOPA\ENTACAPONE\LEVODOPA
     Dosage: UNK /175 MG/ UNK (ENTACAPONE/ LEVODOPA/ CARBIDOPA)

REACTIONS (3)
  - Syncope [Unknown]
  - Cardiac disorder [Unknown]
  - Abdominal discomfort [Unknown]
